FAERS Safety Report 6111608-X (Version None)
Quarter: 2009Q1

REPORT INFORMATION
  Report Type: 
  Country: None (occurrence: None)
  Receive Date: 20090310
  Receipt Date: 20090310
  Transmission Date: 20090719
  Serious: Yes (Hospitalization)
  Sender: FDA-Public Use
  Company Number: None

PATIENT
  Sex: Female
  Weight: 51.36 kg

DRUGS (2)
  1. CISPLATIN [Suspect]
     Dosage: 72 MG
  2. ALIMTA [Suspect]
     Dosage: 725 MG

REACTIONS (3)
  - NAUSEA [None]
  - URINARY TRACT INFECTION [None]
  - VOMITING [None]
